FAERS Safety Report 25870394 (Version 1)
Quarter: 2025Q4

REPORT INFORMATION
  Report Type: Spontaneous
  Country: US (occurrence: US)
  Receive Date: 20251001
  Receipt Date: 20251001
  Transmission Date: 20260118
  Serious: Yes (Hospitalization, Other)
  Sender: DERMARITE INDUSTRIES
  Company Number: US-DERMARITE INDUSTRIES, LLC.-2025-DER-US000040

PATIENT

DRUGS (6)
  1. UTRASURE [Suspect]
     Active Substance: ALUMINUM SESQUICHLOROHYDRATE
     Indication: Miliaria
     Dosage: ONCE DAILY
     Route: 061
     Dates: start: 2024, end: 2025
  2. PERIGUARD [Suspect]
     Active Substance: PETROLATUM
     Indication: Product used for unknown indication
     Dosage: UNK, ONCE DAILY
     Route: 061
     Dates: start: 2024, end: 2025
  3. COSMETICS [Suspect]
     Active Substance: COSMETICS
     Indication: Product used for unknown indication
     Dosage: UNK, ONCE DAILY
     Route: 061
     Dates: start: 2024, end: 2025
  4. DERMAFUNGAL [Suspect]
     Active Substance: MICONAZOLE NITRATE
     Indication: Product used for unknown indication
     Dosage: UNK, ONCE DAILY
     Route: 061
     Dates: start: 2024, end: 2025
  5. ZOLOFT [Concomitant]
     Active Substance: SERTRALINE HYDROCHLORIDE
     Indication: Product used for unknown indication
     Dosage: UNK
  6. LAMICTAL [Concomitant]
     Active Substance: LAMOTRIGINE
     Indication: Product used for unknown indication

REACTIONS (3)
  - Sepsis [Not Recovered/Not Resolved]
  - Breast mass [Not Recovered/Not Resolved]
  - Product use in unapproved indication [Unknown]

NARRATIVE: CASE EVENT DATE: 20240101
